FAERS Safety Report 15390706 (Version 1)
Quarter: 2018Q3

REPORT INFORMATION
  Report Type: Spontaneous
  Country: US (occurrence: US)
  Receive Date: 20180909
  Receipt Date: 20180909
  Transmission Date: 20181010
  Serious: No
  Sender: FDA-Public Use
  Company Number: None

PATIENT
  Age: 88 Year
  Sex: Female
  Weight: 94.5 kg

DRUGS (5)
  1. LIPITOR [Concomitant]
     Active Substance: ATORVASTATIN CALCIUM
  2. LEVOTHYROXINE. [Concomitant]
     Active Substance: LEVOTHYROXINE
  3. ELIQUIS [Suspect]
     Active Substance: APIXABAN
     Indication: ANTICOAGULANT THERAPY
  4. ELIQUIS [Concomitant]
     Active Substance: APIXABAN
  5. CILOSTAZOL. [Concomitant]
     Active Substance: CILOSTAZOL

REACTIONS (4)
  - Joint swelling [None]
  - Pain [None]
  - Fatigue [None]
  - Somnolence [None]
